FAERS Safety Report 22308889 (Version 1)
Quarter: 2023Q2

REPORT INFORMATION
  Report Type: Spontaneous
  Country: US (occurrence: None)
  Receive Date: 20230511
  Receipt Date: 20230511
  Transmission Date: 20230721
  Serious: No
  Sender: FDA-Public Use
  Company Number: US-ROCHE-3279710

PATIENT
  Sex: Female

DRUGS (1)
  1. OCREVUS [Suspect]
     Active Substance: OCRELIZUMAB
     Indication: Product used for unknown indication
     Dosage: SUBSEQUENT DOSE RECEIVED ON 31/JAN/2023
     Route: 042
     Dates: start: 20230117

REACTIONS (3)
  - Headache [Unknown]
  - Frequent bowel movements [Unknown]
  - Faeces soft [Unknown]
